FAERS Safety Report 8925405 (Version 2)
Quarter: 2014Q2

REPORT INFORMATION
  Report Type: Spontaneous
  Country: US (occurrence: US)
  Receive Date: 20121126
  Receipt Date: 20131024
  Transmission Date: 20141212
  Serious: Yes (Hospitalization)
  Sender: FDA-Public Use
  Company Number: US-PFIZER INC-2012293957

PATIENT
  Sex: Male

DRUGS (6)
  1. MORPHINE SULFATE [Suspect]
     Indication: PAIN
     Dosage: UNK
  2. LEVODOPA-CARBIDOPA [Concomitant]
     Dosage: UNK
  3. COMTAN [Concomitant]
     Dosage: UNK
  4. JANUVIA [Concomitant]
     Dosage: UNK
  5. LODOSYN [Concomitant]
     Dosage: UNK
  6. LITHIUM [Concomitant]
     Dosage: UNK
     Dates: start: 1984

REACTIONS (3)
  - Hallucination [Unknown]
  - Confusional state [Unknown]
  - Agitation [Unknown]
